FAERS Safety Report 10429391 (Version 1)
Quarter: 2014Q3

REPORT INFORMATION
  Report Type: Spontaneous
  Country: US (occurrence: None)
  Receive Date: 20140725
  Receipt Date: 20140725
  Transmission Date: 20150326
  Serious: Yes (Other)
  Sender: FDA-Public Use
  Company Number: 163-50794-14052675

PATIENT
  Age: 71 Year
  Sex: Male
  Weight: 144.52 kg

DRUGS (5)
  1. AMBIEN [Concomitant]
     Active Substance: ZOLPIDEM TARTRATE
  2. CENTRUM SILVER MULTIVITAMIN [Concomitant]
  3. VIDAZA [Suspect]
     Active Substance: AZACITIDINE
     Indication: 5Q MINUS SYNDROME
     Dosage: 5 IN 28 D
     Route: 042
     Dates: start: 201309, end: 20140424
  4. LANTUS [Concomitant]
     Active Substance: INSULIN GLARGINE
  5. NEXIUM [Concomitant]
     Active Substance: ESOMEPRAZOLE MAGNESIUM

REACTIONS (2)
  - Drug ineffective [None]
  - Neutropenia [None]

NARRATIVE: CASE EVENT DATE: 2013
